FAERS Safety Report 24756466 (Version 1)
Quarter: 2024Q4

REPORT INFORMATION
  Report Type: Spontaneous
  Country: US (occurrence: US)
  Receive Date: 20241220
  Receipt Date: 20241220
  Transmission Date: 20250114
  Serious: No
  Sender: AMGEN
  Company Number: US-AMGEN-USASP2024248737

PATIENT
  Age: 72 Year
  Sex: Female

DRUGS (2)
  1. PROLIA [Suspect]
     Active Substance: DENOSUMAB
     Indication: Osteoporosis postmenopausal
     Dosage: 60 MILLIGRAM
     Route: 058
     Dates: start: 2023
  2. LEVOTHYROXINE [Concomitant]
     Active Substance: LEVOTHYROXINE
     Dosage: UNK (0.5 FOR 4 DAYS, AND 0.75 FOR3 DAYS, DOSE RECENTLY CHANGED)
     Route: 065
     Dates: start: 1975

REACTIONS (3)
  - Dizziness [Unknown]
  - Spinal stenosis [Unknown]
  - Fall [Unknown]

NARRATIVE: CASE EVENT DATE: 20240101
